FAERS Safety Report 13188795 (Version 2)
Quarter: 2017Q2

REPORT INFORMATION
  Report Type: Spontaneous
  Country: US (occurrence: US)
  Receive Date: 20170206
  Receipt Date: 20170405
  Transmission Date: 20170830
  Serious: No
  Sender: FDA-Public Use
  Company Number: US-009507513-1701USA014302

PATIENT
  Age: 52 Year
  Sex: Male
  Weight: 84.26 kg

DRUGS (8)
  1. ZEPATIER [Suspect]
     Active Substance: ELBASVIR\GRAZOPREVIR
     Indication: HEPATITIS C
     Dosage: 1 TABLET (100/50MG) QD
     Route: 048
     Dates: start: 20170110, end: 20170208
  2. GLIPIZIDE. [Concomitant]
     Active Substance: GLIPIZIDE
  3. HYDROCORTISONE. [Concomitant]
     Active Substance: HYDROCORTISONE
  4. REMERON [Concomitant]
     Active Substance: MIRTAZAPINE
  5. OXYCODONE [Concomitant]
     Active Substance: OXYCODONE
  6. HYDROCODONE [Concomitant]
     Active Substance: HYDROCODONE
  7. GABAPENTIN. [Concomitant]
     Active Substance: GABAPENTIN
  8. XANAX [Concomitant]
     Active Substance: ALPRAZOLAM

REACTIONS (2)
  - Fatigue [Recovered/Resolved]
  - Abnormal dreams [Recovered/Resolved]

NARRATIVE: CASE EVENT DATE: 20170110
